FAERS Safety Report 7227989-X (Version None)
Quarter: 2011Q1

REPORT INFORMATION
  Report Type: 
  Country: None (occurrence: None)
  Receive Date: 20110114
  Receipt Date: 20110111
  Transmission Date: 20110831
  Serious: Yes (Hospitalization)
  Sender: FDA-Public Use
  Company Number: US-ABBOTT-10P-163-0690745-00

PATIENT
  Sex: Female
  Weight: 85 kg

DRUGS (5)
  1. IMURAN [Concomitant]
     Indication: CROHN'S DISEASE
     Route: 048
  2. HUMIRA [Suspect]
     Indication: CROHN'S DISEASE
     Route: 058
     Dates: start: 20090401, end: 20100301
  3. PREDNISOLONE [Concomitant]
     Indication: CROHN'S DISEASE
     Dosage: 20MG ONCE DAILY AND 5MG TWICE DAILY
     Route: 048
  4. PREDNISOLONE [Concomitant]
     Route: 048
  5. HUMIRA [Suspect]
     Route: 058
     Dates: start: 20101125

REACTIONS (4)
  - INTESTINAL STENOSIS [None]
  - INJECTION SITE ERYTHEMA [None]
  - GASTROINTESTINAL INFLAMMATION [None]
  - INJECTION SITE PRURITUS [None]
